FAERS Safety Report 23698617 (Version 1)
Quarter: 2024Q2

REPORT INFORMATION
  Report Type: Spontaneous
  Country: US (occurrence: US)
  Receive Date: 20240402
  Receipt Date: 20240402
  Transmission Date: 20240716
  Serious: No
  Sender: FDA-Public Use
  Company Number: US-SA-SAC20240328000139

PATIENT
  Age: 18 Year
  Sex: Female
  Weight: 76.6 kg

DRUGS (2)
  1. DUPIXENT [Suspect]
     Active Substance: DUPILUMAB
     Indication: Dermatitis atopic
     Dosage: 300 MG, QOW
     Route: 058
     Dates: start: 20230323
  2. DUPIXENT [Suspect]
     Active Substance: DUPILUMAB
     Dosage: RESTARTING IT FEBRUARY (2024)
     Route: 058
     Dates: start: 202402

REACTIONS (4)
  - Skin discolouration [Recovering/Resolving]
  - Eye pain [Recovered/Resolved]
  - Vomiting [Recovered/Resolved]
  - Therapeutic response unexpected [Unknown]
